FAERS Safety Report 8328371-4 (Version None)
Quarter: 2012Q2

REPORT INFORMATION
  Report Type: 
  Country: None (occurrence: None)
  Receive Date: 20120502
  Receipt Date: 20100809
  Transmission Date: 20120825
  Serious: No
  Sender: FDA-Public Use
  Company Number: US-TEVA-2010003478

PATIENT
  Sex: Female
  Weight: 61.29 kg

DRUGS (9)
  1. NUVIGIL [Suspect]
     Indication: POOR QUALITY SLEEP
     Dosage: 150 MILLIGRAM;
     Route: 048
     Dates: start: 20100427, end: 20100625
  2. LIPITOR [Concomitant]
  3. BYSTOLIC [Concomitant]
  4. CALTRATE PLUS D [Concomitant]
  5. FISH OIL [Concomitant]
  6. MICARDIS [Concomitant]
  7. MULTI-VITAMINS [Concomitant]
  8. SINGULAIR [Concomitant]
  9. CHLORDIAZEPOXIDE [Concomitant]

REACTIONS (12)
  - DRY EYE [None]
  - EYE PAIN [None]
  - RASH [None]
  - SKIN EXFOLIATION [None]
  - SWELLING FACE [None]
  - BLOOD PRESSURE INCREASED [None]
  - INSOMNIA [None]
  - SKIN DISCOLOURATION [None]
  - EYE SWELLING [None]
  - URTICARIA [None]
  - BURNING SENSATION [None]
  - EYE PRURITUS [None]
